FAERS Safety Report 6584541-7 (Version None)
Quarter: 2010Q1

REPORT INFORMATION
  Report Type: 
  Country: None (occurrence: None)
  Receive Date: 20100217
  Receipt Date: 20100208
  Transmission Date: 20100710
  Serious: Yes (Other)
  Sender: FDA-Public Use
  Company Number: US-RANBAXY-2010RR-31032

PATIENT
  Age: 52 Year
  Sex: Female

DRUGS (20)
  1. FENTANYL-100 [Suspect]
     Dosage: UNK
     Dates: start: 20051201
  2. FENTANYL-100 [Suspect]
     Dosage: 150 UG, UNK
     Dates: start: 20060701
  3. FENTANYL-100 [Suspect]
     Dosage: 100 UG, UNK
  4. PROPOFOL [Suspect]
     Indication: ANAESTHESIA
     Dosage: UNK
     Dates: start: 20051201
  5. PROPOFOL [Suspect]
     Dosage: 100 MG, UNK
     Route: 055
     Dates: start: 20060701
  6. PROPOFOL [Suspect]
     Dosage: 100 MG, UNK
  7. MIDAZOLAM HYDROCHLORIDE [Suspect]
     Indication: ANAESTHESIA
     Dosage: UNK
     Dates: start: 20051201
  8. MIDAZOLAM HYDROCHLORIDE [Suspect]
     Dosage: 2 MG, UNK
  9. ISOFLURANE [Suspect]
     Indication: ANAESTHESIA
     Dosage: UNK
     Dates: start: 20051201
  10. ISOFLURANE [Suspect]
     Indication: GENERAL ANAESTHESIA
     Dosage: UNK
     Dates: start: 20060701
  11. ISOFLURANE [Suspect]
  12. BUPIVACAINE HCL [Suspect]
     Indication: ANAESTHESIA
     Dosage: 36 ML, UNK
     Dates: start: 20060701
  13. NITROUS OXIDE [Suspect]
     Indication: GENERAL ANAESTHESIA
     Dosage: UNK
     Dates: start: 20060701
  14. SUCCINYLCHOLINE CHLORIDE [Suspect]
     Dosage: 40 MG, UNK
  15. GABAPENTIN [Concomitant]
     Dosage: UNK
     Dates: start: 20060701
  16. TRAMADOL [Concomitant]
     Dosage: UNK
     Dates: start: 20060701
  17. ACETAMINOPHEN WITH PROPOXYPHENE HCL TAB [Concomitant]
     Dosage: UNK
     Dates: start: 20060701
  18. DULOXETINE [Concomitant]
  19. HYDROCODONE/PARACETAMOL [ACETAMINOPHEN] [Concomitant]
  20. PREGABALIN [Concomitant]

REACTIONS (1)
  - SOMATOFORM DISORDER [None]
